FAERS Safety Report 9127582 (Version 1)
Quarter: 2013Q1

REPORT INFORMATION
  Report Type: Spontaneous
  Country: US (occurrence: US)
  Receive Date: 20130228
  Receipt Date: 20130228
  Transmission Date: 20140127
  Serious: No
  Sender: FDA-Public Use
  Company Number: US-GLAXOSMITHKLINE-A0985728A

PATIENT
  Age: 47 Year
  Sex: Male

DRUGS (3)
  1. LAMICTAL [Suspect]
     Indication: BIPOLAR DISORDER
     Dosage: 25MG PER DAY
     Route: 048
     Dates: start: 20120718
  2. ATENOLOL [Concomitant]
  3. GABAPENTIN [Concomitant]

REACTIONS (5)
  - Anxiety [Not Recovered/Not Resolved]
  - Depression [Unknown]
  - Tension [Unknown]
  - Discomfort [Unknown]
  - Mood altered [Unknown]
